FAERS Safety Report 8774039 (Version 6)
Quarter: 2013Q4

REPORT INFORMATION
  Report Type: Spontaneous
  Country: US (occurrence: US)
  Receive Date: 20120908
  Receipt Date: 20131007
  Transmission Date: 20140711
  Serious: Yes (Hospitalization, Disabling, Other)
  Sender: FDA-Public Use
  Company Number: US-009507513-1208USA012035

PATIENT
  Sex: Female
  Weight: 68.6 kg

DRUGS (9)
  1. FOSAMAX [Suspect]
     Indication: PROPHYLAXIS
     Dosage: 70 MG, QW
     Route: 048
     Dates: start: 20020814, end: 2009
  2. FOSAMAX [Suspect]
     Indication: OSTEOPENIA
  3. CARTIA XT [Concomitant]
     Indication: HYPERTENSION
  4. METOPROLOL TARTRATE [Concomitant]
     Indication: HYPERTENSION
  5. AZATHIOPRINE [Concomitant]
     Dosage: UNK
     Dates: start: 1996, end: 2012
  6. ERYTHROMYCIN [Concomitant]
     Dosage: UNK
     Dates: start: 1996
  7. ALLEGRA-D [Concomitant]
     Indication: HYPERSENSITIVITY
     Dosage: UNK
     Dates: start: 1990
  8. ZYRTEC [Concomitant]
     Indication: HYPERSENSITIVITY
     Dosage: UNK, PRN
  9. FEXOFENADINE HYDROCHLORIDE [Concomitant]
     Indication: HYPERSENSITIVITY
     Dosage: UNK

REACTIONS (36)
  - Intramedullary rod insertion [Unknown]
  - Femur fracture [Recovered/Resolved]
  - Femur fracture [Not Recovered/Not Resolved]
  - Intramedullary rod insertion [Unknown]
  - Plasma cell myeloma [Unknown]
  - Deep vein thrombosis [Unknown]
  - Corneal erosion [Not Recovered/Not Resolved]
  - Osteoarthritis [Unknown]
  - Osteoarthritis [Unknown]
  - Tendon sheath incision [Unknown]
  - Bone scan abnormal [Unknown]
  - Osteotomy [Unknown]
  - Medical device removal [Unknown]
  - Musculoskeletal disorder [Unknown]
  - Tenosynovitis [Unknown]
  - Trigger finger [Unknown]
  - Bunion operation [Unknown]
  - Uterine dilation and curettage [Unknown]
  - Hypercholesterolaemia [Unknown]
  - Anaemia postoperative [Recovering/Resolving]
  - Rhinoplasty [Unknown]
  - Low turnover osteopathy [Unknown]
  - Foot fracture [Unknown]
  - Skin lesion [Unknown]
  - Nasal septum deviation [Unknown]
  - Hyperkeratosis [Unknown]
  - Dry throat [Not Recovered/Not Resolved]
  - Dry eye [Not Recovered/Not Resolved]
  - Synovial cyst [Unknown]
  - Bunion operation [Unknown]
  - Vomiting [Unknown]
  - Nausea [Unknown]
  - Musculoskeletal pain [Unknown]
  - Pain in extremity [Unknown]
  - Neck pain [Unknown]
  - Pain in extremity [Unknown]
